FAERS Safety Report 21741641 (Version 1)
Quarter: 2022Q4

REPORT INFORMATION
  Report Type: Spontaneous
  Country: IT (occurrence: IT)
  Receive Date: 20221216
  Receipt Date: 20221216
  Transmission Date: 20230113
  Serious: Yes (Other)
  Sender: FDA-Public Use
  Company Number: IT-AMGEN-ITASP2022214621

PATIENT

DRUGS (8)
  1. ADALIMUMAB [Suspect]
     Active Substance: ADALIMUMAB
     Indication: Colitis ulcerative
     Dosage: UNK
     Route: 065
  2. MESALAMINE [Concomitant]
     Active Substance: MESALAMINE
     Indication: Colitis ulcerative
     Dosage: UNK
  3. METHOTREXATE [Concomitant]
     Active Substance: METHOTREXATE
     Indication: Colitis ulcerative
     Dosage: UNK
  4. GOLIMUMAB [Concomitant]
     Active Substance: GOLIMUMAB
     Indication: Colitis ulcerative
     Dosage: UNK
  5. VEDOLIZUMAB [Concomitant]
     Active Substance: VEDOLIZUMAB
     Indication: Colitis ulcerative
     Dosage: UNK
  6. AZATHIOPRINE [Concomitant]
     Active Substance: AZATHIOPRINE
     Indication: Colitis ulcerative
     Dosage: UNK
  7. HUMAN PAPILLOMAVIRUS QUADRIVALENT (TYPES 6, 11, 16, AND 18) VACCINE, R [Concomitant]
     Active Substance: HUMAN PAPILLOMAVIRUS QUADRIVALENT (TYPES 6, 11, 16, AND 18) VACCINE, RECOMBINANT
     Indication: Human papilloma virus immunisation
     Dosage: UNK
  8. STREPTOCOCCUS PNEUMONIAE [Concomitant]
     Dosage: UNK

REACTIONS (17)
  - Colitis ulcerative [Unknown]
  - Cholangitis sclerosing [Unknown]
  - Plasma cell myeloma [Unknown]
  - Colorectal cancer [Unknown]
  - Prostate cancer [Unknown]
  - Thyroid cancer [Unknown]
  - Pancreatic carcinoma [Unknown]
  - Gastric cancer [Unknown]
  - Breast cancer [Unknown]
  - Extranodal marginal zone B-cell lymphoma (MALT type) [Unknown]
  - Skin cancer [Unknown]
  - Erythema nodosum [Unknown]
  - Eye disorder [Unknown]
  - Hepatobiliary disease [Unknown]
  - Skin disorder [Unknown]
  - Adverse event [Unknown]
  - Arthropathy [Unknown]
